FAERS Safety Report 6095084-1 (Version None)
Quarter: 2009Q1

REPORT INFORMATION
  Report Type: 
  Country: None (occurrence: None)
  Receive Date: 20090227
  Receipt Date: 20080115
  Transmission Date: 20090719
  Serious: No
  Sender: FDA-Public Use
  Company Number: A0703360A

PATIENT
  Age: 36 Year

DRUGS (4)
  1. LAMICTAL [Suspect]
     Indication: DEPRESSION
     Route: 048
     Dates: start: 20071214, end: 20071216
  2. DEPAKOTE [Concomitant]
  3. MULTIPLE MEDICATIONS [Concomitant]
     Indication: NEURALGIA
  4. UNSPECIFIED PAIN MEDICATION [Concomitant]

REACTIONS (4)
  - NEURALGIA [None]
  - PAIN [None]
  - PRURITUS [None]
  - STOMATITIS [None]
